FAERS Safety Report 7433340-2 (Version None)
Quarter: 2011Q2

REPORT INFORMATION
  Report Type: 
  Country: None (occurrence: None)
  Receive Date: 20110415
  Receipt Date: 20110401
  Transmission Date: 20111010
  Serious: Yes (Death)
  Sender: FDA-Public Use
  Company Number: 030638

PATIENT

DRUGS (3)
  1. CLOBAZAM [Concomitant]
  2. LEVETIRACETAM [Suspect]
     Indication: EPILEPSY
     Dosage: (DAILY DOSE: 1000 TRANSPLACENTAL)
     Route: 064
  3. OXCARBAZEPINE [Concomitant]

REACTIONS (2)
  - DEATH NEONATAL [None]
  - MATERNAL DRUGS AFFECTING FOETUS [None]
